FAERS Safety Report 8906574 (Version 1)
Quarter: 2012Q4

REPORT INFORMATION
  Report Type: Spontaneous
  Country: GB (occurrence: None)
  Receive Date: 20121107
  Receipt Date: 20121107
  Transmission Date: 20130627
  Serious: Yes (Other)
  Sender: FDA-Public Use
  Company Number: 2012-01625

PATIENT
  Age: U None
  Sex: Female

DRUGS (4)
  1. SIMVASTATIN [Suspect]
     Indication: HYPOTHYROIDISM
     Dates: end: 20121003
  2. SPIRONOLACTONE [Concomitant]
  3. LIOTHYRONINE (LIOTHYRONINE SODIUM) (UNKNOWN) [Concomitant]
  4. METFORMIN (UNKNOWN) [Concomitant]

REACTIONS (4)
  - Interstitial lung disease [None]
  - Lung disorder [None]
  - Pain [None]
  - Off label use [None]
